FAERS Safety Report 9937178 (Version 1)
Quarter: 2014Q1

REPORT INFORMATION
  Report Type: Spontaneous
  Country: US (occurrence: US)
  Receive Date: 20140301
  Receipt Date: 20140301
  Transmission Date: 20141002
  Serious: No
  Sender: FDA-Public Use
  Company Number: US-009507513-1402USA012708

PATIENT
  Sex: Male

DRUGS (1)
  1. INTRONA [Suspect]
     Indication: MALIGNANT MELANOMA
     Dosage: UNK, QOD; THERAPY ROUTE: INJECTION
     Dates: start: 201401

REACTIONS (3)
  - Rhinorrhoea [Unknown]
  - Increased upper airway secretion [Unknown]
  - Sinus disorder [Unknown]
